FAERS Safety Report 6697584-X (Version None)
Quarter: 2010Q2

REPORT INFORMATION
  Report Type: 
  Country: None (occurrence: None)
  Receive Date: 20100426
  Receipt Date: 20091202
  Transmission Date: 20101027
  Serious: No
  Sender: FDA-Public Use
  Company Number: US-ABBOTT-09P-163-0612845-00

PATIENT
  Sex: Female
  Weight: 46.308 kg

DRUGS (3)
  1. AZMACORT [Suspect]
     Indication: ASTHMA
     Dosage: 3 PUFFS IN MORNING + 2 PUFFS IN EVENING
     Route: 055
     Dates: start: 19890101
  2. FORADIL [Concomitant]
     Indication: ASTHMA
     Dosage: EVERY MORNING
  3. SINGULAIR [Concomitant]
     Indication: ASTHMA
     Dates: start: 20050101

REACTIONS (1)
  - OSTEOPOROSIS [None]
